FAERS Safety Report 11106604 (Version 1)
Quarter: 2015Q2

REPORT INFORMATION
  Report Type: Spontaneous
  Country: CA (occurrence: CA)
  Receive Date: 20150512
  Receipt Date: 20150512
  Transmission Date: 20150821
  Serious: Yes (Death, Other)
  Sender: FDA-Public Use
  Company Number: CA-SA-2014SA013853

PATIENT
  Sex: Female
  Weight: 49.9 kg

DRUGS (5)
  1. KADCYLA [Suspect]
     Active Substance: ADO-TRASTUZUMAB EMTANSINE
     Indication: BREAST CANCER METASTATIC
     Dosage: FORM: POWDER FOR SOLUTION INTRAVENOUS
     Route: 042
     Dates: start: 20140107, end: 20140107
  2. TAXOTERE [Suspect]
     Active Substance: DOCETAXEL
     Indication: BREAST CANCER
     Dosage: FORM:SOLUTION INTRAVENOUS
     Route: 065
     Dates: start: 201209, end: 201211
  3. TRASTUZUMAB [Suspect]
     Active Substance: TRASTUZUMAB
     Route: 065
  4. HERCEPTIN [Suspect]
     Active Substance: TRASTUZUMAB
     Indication: BREAST CANCER
     Route: 065
     Dates: start: 20120901, end: 20131001
  5. TAMOXIFEN CITRATE. [Suspect]
     Active Substance: TAMOXIFEN CITRATE
     Indication: BREAST CANCER
     Route: 065
     Dates: start: 201309, end: 201311

REACTIONS (8)
  - Pharyngitis streptococcal [Unknown]
  - Drug ineffective [Fatal]
  - Hyperchlorhydria [Fatal]
  - Malignant neoplasm progression [Fatal]
  - Hyperchlorhydria [Unknown]
  - Muscle spasms [Fatal]
  - Mobility decreased [Fatal]
  - Pain [Fatal]

NARRATIVE: CASE EVENT DATE: 2013
